FAERS Safety Report 7072520-5 (Version None)
Quarter: 2010Q4

REPORT INFORMATION
  Report Type: 
  Country: None (occurrence: None)
  Receive Date: 20101029
  Receipt Date: 20100202
  Transmission Date: 20110411
  Serious: No
  Sender: FDA-Public Use
  Company Number: A0843091A

PATIENT
  Sex: Female

DRUGS (1)
  1. ADVAIR DISKUS 100/50 [Suspect]
     Indication: ASTHMA
     Route: 055
     Dates: start: 20090101

REACTIONS (5)
  - DYSPHONIA [None]
  - JOINT SPRAIN [None]
  - MUSCLE DISORDER [None]
  - MUSCLE SPASMS [None]
  - NERVOUSNESS [None]
